FAERS Safety Report 21545985 (Version 1)
Quarter: 2022Q4

REPORT INFORMATION
  Report Type: Spontaneous
  Country: US (occurrence: US)
  Receive Date: 20221103
  Receipt Date: 20221103
  Transmission Date: 20230112
  Serious: No
  Sender: FDA-Public Use
  Company Number: US-SANOFI-01342216

PATIENT
  Age: 88 Year
  Sex: Male

DRUGS (3)
  1. TOUJEO MAX [Suspect]
     Active Substance: INSULIN GLARGINE
     Indication: Diabetes mellitus
     Dosage: 80 U
     Dates: start: 2017
  2. TOUJEO MAX [Suspect]
     Active Substance: INSULIN GLARGINE
     Dosage: 70 U
     Dates: start: 2022
  3. OZEMPIC [Suspect]
     Active Substance: SEMAGLUTIDE
     Indication: Type 2 diabetes mellitus

REACTIONS (3)
  - Weight decreased [Unknown]
  - Blood pressure decreased [Unknown]
  - Blood glucose decreased [Unknown]
